FAERS Safety Report 12086174 (Version 1)
Quarter: 2016Q1

REPORT INFORMATION
  Report Type: Spontaneous
  Country: US (occurrence: US)
  Receive Date: 20160217
  Receipt Date: 20160217
  Transmission Date: 20160526
  Serious: Yes (Other)
  Sender: FDA-Public Use
  Company Number: US-TEVA-634778USA

PATIENT
  Age: 20 Year
  Sex: Female

DRUGS (1)
  1. COPAXONE [Suspect]
     Active Substance: GLATIRAMER ACETATE
     Route: 058
     Dates: start: 20150322, end: 20151101

REACTIONS (5)
  - Seizure [Unknown]
  - Throat tightness [Unknown]
  - Injection site reaction [Unknown]
  - Respiratory arrest [Unknown]
  - Chills [Unknown]

NARRATIVE: CASE EVENT DATE: 201511
